FAERS Safety Report 23557038 (Version 1)
Quarter: 2024Q1

REPORT INFORMATION
  Report Type: Spontaneous
  Country: US (occurrence: US)
  Receive Date: 20240223
  Receipt Date: 20240223
  Transmission Date: 20240409
  Serious: No
  Sender: FDA-Public Use
  Company Number: US-BRISTOL-MYERS SQUIBB COMPANY-2024-024092

PATIENT
  Age: 71 Year
  Sex: Female
  Weight: 63.05 kg

DRUGS (1)
  1. THALOMID [Suspect]
     Active Substance: THALIDOMIDE
     Indication: Hereditary haemorrhagic telangiectasia
     Route: 048

REACTIONS (1)
  - Off label use [Unknown]
